FAERS Safety Report 12472606 (Version 2)
Quarter: 2016Q2

REPORT INFORMATION
  Report Type: Spontaneous
  Country: US (occurrence: US)
  Receive Date: 20160616
  Receipt Date: 20160616
  Transmission Date: 20160815
  Serious: No
  Sender: FDA-Public Use
  Company Number: US-WELLSTAT THERAPEUTICS CORPORATION-1053869

PATIENT
  Age: 54 Year
  Sex: Male

DRUGS (16)
  1. ALBUTEROL. [Concomitant]
     Active Substance: ALBUTEROL
  2. AMIODARONE HCL [Concomitant]
     Active Substance: AMIODARONE HYDROCHLORIDE
  3. SODIUM CHLORIDE. [Concomitant]
     Active Substance: SODIUM CHLORIDE
  4. GRANIX [Concomitant]
     Active Substance: TBO-FILGRASTIM
     Route: 058
  5. VISTOGARD [Suspect]
     Active Substance: URIDINE TRIACETATE
     Indication: ACCIDENTAL OVERDOSE
     Route: 050
     Dates: start: 20160304, end: 20160309
  6. DOCETAXEL. [Concomitant]
     Active Substance: DOCETAXEL
     Dates: start: 20160302
  7. METOPROLOL TARTATE [Concomitant]
     Active Substance: METOPROLOL TARTRATE
  8. CEFEPIME [Concomitant]
     Active Substance: CEFEPIME HYDROCHLORIDE
     Route: 041
  9. VANCOMYCIN HCL [Concomitant]
     Active Substance: VANCOMYCIN HYDROCHLORIDE
  10. TYLENOL [Concomitant]
     Active Substance: ACETAMINOPHEN
  11. CISPLATIN. [Concomitant]
     Active Substance: CISPLATIN
     Dates: start: 20160302
  12. COMPAZINE [Concomitant]
     Active Substance: PROCHLORPERAZINE MALEATE
  13. FLUOROURACIL. [Concomitant]
     Active Substance: FLUOROURACIL
     Route: 042
     Dates: start: 20160302
  14. MURINE EAR DROPS [Concomitant]
  15. HEPARIN LOCK FLUSH [Concomitant]
     Active Substance: HEPARIN SODIUM
  16. PROTONIX [Concomitant]
     Active Substance: PANTOPRAZOLE SODIUM

REACTIONS (1)
  - Vomiting [Recovered/Resolved]

NARRATIVE: CASE EVENT DATE: 20160308
